FAERS Safety Report 5541937-X (Version None)
Quarter: 2007Q4

REPORT INFORMATION
  Report Type: 
  Country: None (occurrence: None)
  Receive Date: 20071210
  Receipt Date: 20071207
  Transmission Date: 20080405
  Serious: Yes (Life-Threatening, Hospitalization, Disabling, Other)
  Sender: FDA-Public Use
  Company Number: JP-BRISTOL-MYERS SQUIBB COMPANY-14007678

PATIENT
  Age: 74 Year
  Sex: Male
  Weight: 56 kg

DRUGS (10)
  1. CISPLATIN [Suspect]
     Indication: PLEURAL MESOTHELIOMA MALIGNANT
     Dosage: THERAPY START AND STOP DATE- 03APR07-02MAY07-75 MG/M2;30 DAY DURATION;02MAY07-02MAY07-85MG IV
     Route: 042
     Dates: end: 20070525
  2. PEMETREXED DISODIUM [Suspect]
     Indication: PLEURAL MESOTHELIOMA MALIGNANT
     Dosage: THERAPY START AND STOP DATE- 03APR07-03APR07-500MG/M2;1 DAY DURATION;02MAY07-02MAY07 730MG IV-VIAL
     Route: 042
     Dates: end: 20070525
  3. PANVITAN [Concomitant]
     Dates: start: 20070326, end: 20070531
  4. MASBLON H [Concomitant]
     Dates: start: 20070326, end: 20070524
  5. NORVASC [Concomitant]
  6. FRANDOL [Concomitant]
  7. KYTRIL [Concomitant]
     Dates: start: 20070403, end: 20070502
  8. DECADRON [Concomitant]
     Dates: start: 20070403, end: 20070502
  9. ZANTAC [Concomitant]
     Dates: start: 20070403, end: 20070404
  10. FOSMICIN-S [Concomitant]
     Dates: start: 20070403, end: 20070404

REACTIONS (7)
  - ANAEMIA [None]
  - DIARRHOEA [None]
  - NEUTROPHIL COUNT DECREASED [None]
  - PLATELET COUNT DECREASED [None]
  - RENAL IMPAIRMENT [None]
  - SHOCK [None]
  - WHITE BLOOD CELL COUNT DECREASED [None]
